FAERS Safety Report 18237870 (Version 11)
Quarter: 2022Q1

REPORT INFORMATION
  Report Type: Spontaneous
  Country: GB (occurrence: GB)
  Receive Date: 20200907
  Receipt Date: 20220302
  Transmission Date: 20220423
  Serious: Yes (Other)
  Sender: FDA-Public Use
  Company Number: GB-EMA-DD-20200817-FAIZAN_M-134528

PATIENT
  Age: 59 Year
  Sex: Female

DRUGS (22)
  1. FERROUS SULFATE [Suspect]
     Active Substance: FERROUS SULFATE
     Indication: Anaemia
     Dosage: 3 DAILY, STRENGTH: 200 MG
     Route: 065
  2. FERROUS SULFATE [Suspect]
     Active Substance: FERROUS SULFATE
     Dosage: 3 DOSAGE FORM, ONCE A DAY (250MG)
     Route: 065
  3. FERROUS SULFATE [Suspect]
     Active Substance: FERROUS SULFATE
     Dosage: 200 MILLIGRAM, 3 TIMES A DAY
     Route: 065
  4. FERROUS SULFATE [Suspect]
     Active Substance: FERROUS SULFATE
     Dosage: 600 MILLIGRAM, DAILY, 200 MG, QD (3 DAILY, STRENGTH: 200 MG)/ TID
     Route: 065
  5. BISOPROLOL FUMARATE [Suspect]
     Active Substance: BISOPROLOL FUMARATE
     Indication: Product used for unknown indication
     Dosage: STRENGTH: 1.25MG
     Route: 065
  6. APIXABAN [Concomitant]
     Active Substance: APIXABAN
     Indication: Product used for unknown indication
     Dosage: 5MG, UNK
     Route: 065
  7. APIXABAN [Concomitant]
     Active Substance: APIXABAN
     Dosage: 30 MG, UNKNOWN
     Route: 065
  8. APIXABAN [Concomitant]
     Active Substance: APIXABAN
     Route: 065
  9. APIXABAN [Concomitant]
     Active Substance: APIXABAN
     Dosage: 5 MILLIGRAM
     Route: 065
  10. LANSOPRAZOLE [Concomitant]
     Active Substance: LANSOPRAZOLE
     Indication: Product used for unknown indication
     Dosage: 30 MILLIGRAM
     Route: 065
  11. LANSOPRAZOLE [Concomitant]
     Active Substance: LANSOPRAZOLE
     Dosage: UNK
     Route: 065
  12. LANSOPRAZOLE [Concomitant]
     Active Substance: LANSOPRAZOLE
     Dosage: 30 MILLIGRAM
     Route: 065
  13. LISINOPRIL [Concomitant]
     Active Substance: LISINOPRIL
     Indication: Product used for unknown indication
     Dosage: STRENGTH: 5 MG
     Route: 065
  14. LISINOPRIL [Concomitant]
     Active Substance: LISINOPRIL
     Dosage: UNK ()
     Route: 065
  15. LIPITOR [Concomitant]
     Active Substance: ATORVASTATIN CALCIUM
     Indication: Product used for unknown indication
     Dosage: 80MG, UNK
     Route: 065
  16. LIPITOR [Concomitant]
     Active Substance: ATORVASTATIN CALCIUM
     Dosage: 1 DF, UNKNOWN
     Route: 065
  17. LIPITOR [Concomitant]
     Active Substance: ATORVASTATIN CALCIUM
     Route: 065
  18. BISOPROLOL [Suspect]
     Active Substance: BISOPROLOL
     Indication: Product used for unknown indication
  19. FERROUS SULFATE [Suspect]
     Active Substance: FERROUS SULFATE
     Indication: Product used for unknown indication
  20. FERROUS SULFATE [Suspect]
     Active Substance: FERROUS SULFATE
     Indication: Product used for unknown indication
  21. FERROUS SULFATE [Suspect]
     Active Substance: FERROUS SULFATE
     Indication: Product used for unknown indication
  22. FERROUS SULFATE [Suspect]
     Active Substance: FERROUS SULFATE
     Indication: Product used for unknown indication

REACTIONS (1)
  - Coeliac disease [Unknown]
